FAERS Safety Report 8795815 (Version 2)
Quarter: 2012Q4

REPORT INFORMATION
  Report Type: 
  Country: DK (occurrence: FR)
  Receive Date: 20120920
  Receipt Date: 20120928
  Transmission Date: 20130627
  Serious: Yes (Hospitalization)
  Sender: FDA-Public Use
  Company Number: FR-FRI-1000038611

PATIENT
  Age: 73 Year
  Sex: Female

DRUGS (8)
  1. ESCITALOPRAM [Suspect]
     Dosage: 15 mg
     Route: 048
  2. ESCITALOPRAM [Suspect]
     Route: 048
  3. LEPTICUR [Suspect]
     Dosage: 30 DF
     Route: 048
  4. LEPTICUR [Suspect]
     Dosage: Overdose: unknown amount
  5. LEVOTHYROX [Concomitant]
     Dosage: 75  mcg
     Route: 048
  6. ALPRAZOLAM [Concomitant]
     Dosage: 0.25 mg
     Route: 048
  7. ZYPREXA [Concomitant]
     Dosage: 1 DF
     Route: 048
  8. INEXIUM [Concomitant]
     Dosage: 40 mg

REACTIONS (6)
  - Confusional state [Recovered/Resolved]
  - Dizziness [Recovered/Resolved]
  - Somnolence [Recovered/Resolved]
  - Walking disability [Recovered/Resolved]
  - Lung disorder [Recovered/Resolved]
  - Overdose [Recovered/Resolved]
